FAERS Safety Report 13595006 (Version 4)
Quarter: 2020Q3

REPORT INFORMATION
  Report Type: Report from Study
  Country: US (occurrence: US)
  Receive Date: 20170531
  Receipt Date: 20180427
  Transmission Date: 20201104
  Serious: Yes (Other)
  Sender: FDA-Public Use
  Company Number: US-ASTRAZENECA-2016SF04605

PATIENT
  Age: 29069 Day
  Sex: Female

DRUGS (28)
  1. TREMELIMUMAB. [Suspect]
     Active Substance: TREMELIMUMAB
     Indication: NON-SMALL CELL LUNG CANCER
     Route: 042
     Dates: start: 20160608, end: 20160608
  2. KETOTIFEN FUMARATE. [Concomitant]
     Active Substance: KETOTIFEN FUMARATE
     Indication: SEASONAL ALLERGY
     Dosage: 1 DF BID
     Route: 047
     Dates: start: 20160418
  3. BIOTENE NOS [Concomitant]
     Active Substance: CETYLPYRIDINIUM CHLORIDE OR SODIUM FLUORIDE OR SODIUM MONOFLUOROPHOSPHATE OR GLUCOSE OXIDASE\LACTOFERRIN\LACTOPEROXIDASE BOVINE\LYSOZYME
     Indication: DRY MOUTH
     Dosage: PRN
     Route: 004
     Dates: start: 20160610
  4. CIPROFLOXACIN. [Concomitant]
     Active Substance: CIPROFLOXACIN
     Indication: PELVIC INFECTION
     Route: 048
     Dates: start: 20160831, end: 20160907
  5. TREMELIMUMAB. [Suspect]
     Active Substance: TREMELIMUMAB
     Indication: NON-SMALL CELL LUNG CANCER
     Route: 042
     Dates: start: 20160511, end: 20160511
  6. COENZYME Q10 [Concomitant]
     Active Substance: DIETARY SUPPLEMENT\UBIDECARENONE
     Indication: NUTRITIONAL SUPPLEMENTATION
     Dosage: 100 MG DAILY
     Route: 048
     Dates: start: 2013
  7. MEDI4736 [Suspect]
     Active Substance: DURVALUMAB
     Indication: NON-SMALL CELL LUNG CANCER
     Route: 042
     Dates: start: 20160413, end: 20160413
  8. MEDI4736 [Suspect]
     Active Substance: DURVALUMAB
     Indication: NON-SMALL CELL LUNG CANCER
     Route: 042
     Dates: start: 20160803, end: 20160803
  9. MAGNESIUM [Concomitant]
     Active Substance: MAGNESIUM
     Indication: HYPERTENSION
     Dosage: 400 MG DAILY
     Route: 048
     Dates: start: 201509
  10. ASPIRIN. [Concomitant]
     Active Substance: ASPIRIN
     Indication: PAIN MANAGEMENT
     Route: 048
     Dates: start: 1996
  11. GUAIFENSIN?CODEINE (ROBITUSSIN) [Concomitant]
     Indication: COUGH
     Dosage: PRN
     Route: 048
     Dates: start: 20160415
  12. MEDI4736 [Suspect]
     Active Substance: DURVALUMAB
     Indication: NON-SMALL CELL LUNG CANCER
     Route: 042
     Dates: start: 20160706, end: 20160706
  13. ATENOLOL. [Concomitant]
     Active Substance: ATENOLOL
     Indication: HYPERTENSION
     Dosage: 50 MG BID
     Route: 048
     Dates: start: 20150914
  14. CALCIUM?MAGNESIUM?ZINC [Concomitant]
     Indication: NUTRITIONAL SUPPLEMENTATION
     Dosage: 1 DF DAILY
     Route: 048
  15. MEDI4736 [Suspect]
     Active Substance: DURVALUMAB
     Indication: NON-SMALL CELL LUNG CANCER
     Route: 042
     Dates: start: 20160511, end: 20160511
  16. CHOLECALCIFEROL [Concomitant]
     Active Substance: CHOLECALCIFEROL
     Indication: NUTRITIONAL SUPPLEMENTATION
     Dosage: 500 IU DAILY
     Route: 048
     Dates: start: 2014
  17. OMEGA 3 [Concomitant]
     Active Substance: OMEGA-3 FATTY ACIDS
     Indication: NUTRITIONAL SUPPLEMENTATION
     Dosage: DAILY
     Route: 048
     Dates: start: 1996
  18. PROBIOTIC [Concomitant]
     Active Substance: PROBIOTICS NOS
     Indication: NUTRITIONAL SUPPLEMENTATION
     Dosage: 100 MG DAILY
     Route: 048
     Dates: start: 2004
  19. METRONIDAZOLE. [Concomitant]
     Active Substance: METRONIDAZOLE
     Indication: PELVIC INFECTION
     Dosage: 500 MG EVERY 6 HOURS
     Route: 048
     Dates: start: 20160831, end: 20160907
  20. TREMELIMUMAB. [Suspect]
     Active Substance: TREMELIMUMAB
     Indication: NON-SMALL CELL LUNG CANCER
     Route: 042
     Dates: start: 20160318, end: 20160318
  21. TREMELIMUMAB. [Suspect]
     Active Substance: TREMELIMUMAB
     Indication: NON-SMALL CELL LUNG CANCER
     Route: 042
     Dates: start: 20160413, end: 20160413
  22. PRILOSEC [Concomitant]
     Active Substance: OMEPRAZOLE MAGNESIUM
     Indication: ULCER
     Dosage: 100 MG DAILY
     Route: 048
     Dates: start: 20151106
  23. SIMVASTATIN. [Concomitant]
     Active Substance: SIMVASTATIN
     Indication: HYPERLIPIDAEMIA
     Dosage: 20 MG DAILY
     Route: 048
     Dates: start: 20151020
  24. MEDI4736 [Suspect]
     Active Substance: DURVALUMAB
     Indication: NON-SMALL CELL LUNG CANCER
     Route: 042
     Dates: start: 20160318, end: 20160318
  25. MEDI4736 [Suspect]
     Active Substance: DURVALUMAB
     Indication: NON-SMALL CELL LUNG CANCER
     Route: 042
     Dates: start: 20160608, end: 20160608
  26. HYDROCODONE?ACETAMINOPHEN [Concomitant]
     Active Substance: ACETAMINOPHEN\HYDROCODONE
     Indication: PAIN MANAGEMENT
     Dosage: 5 MG PRN
     Route: 048
     Dates: start: 2010
  27. LISINOPRIL. [Concomitant]
     Active Substance: LISINOPRIL
     Indication: HYPERTENSION
     Dosage: 20 MG DAILY
     Route: 048
     Dates: start: 20151020
  28. MAXZIDE [Concomitant]
     Active Substance: HYDROCHLOROTHIAZIDE\TRIAMTERENE
     Indication: HYPERLIPIDAEMIA
     Dosage: 25 MG DAILY
     Route: 048
     Dates: start: 20151020

REACTIONS (1)
  - Nephritis [Recovered/Resolved]

NARRATIVE: CASE EVENT DATE: 20160907
